FAERS Safety Report 8120577-2 (Version None)
Quarter: 2012Q1

REPORT INFORMATION
  Report Type: 
  Country: None (occurrence: None)
  Receive Date: 20120207
  Receipt Date: 20120125
  Transmission Date: 20120608
  Serious: Yes (Other)
  Sender: FDA-Public Use
  Company Number: BR-PFIZER INC-2012023083

PATIENT
  Age: 25 Year
  Sex: Female
  Weight: 58 kg

DRUGS (5)
  1. GESTODENE AND ETHINYL ESTRADIOL [Suspect]
     Indication: CONTRACEPTION
     Dosage: 1 DF, 1X/DAY
     Route: 048
     Dates: start: 20111227, end: 20120116
  2. NAPHAZOLINE [Concomitant]
     Dosage: UNK
     Dates: start: 20120101, end: 20120101
  3. PROTEINS NOS [Concomitant]
  4. TPN [Concomitant]
  5. TETRACYCLINE HCL [Interacting]
     Indication: OROPHARYNGEAL PAIN
     Dosage: 500 MG, 2X/DAY
     Route: 048
     Dates: start: 20120103, end: 20120105

REACTIONS (4)
  - DRUG INTERACTION [None]
  - HAEMORRHAGE IN PREGNANCY [None]
  - DRUG ADMINISTRATION ERROR [None]
  - UNINTENDED PREGNANCY [None]
